APPROVED DRUG PRODUCT: GABAPENTIN
Active Ingredient: GABAPENTIN
Strength: 600MG
Dosage Form/Route: TABLET;ORAL
Application: A078926 | Product #001 | TE Code: AB1
Applicant: ZYDUS PHARMACEUTICALS USA INC
Approved: Feb 11, 2011 | RLD: No | RS: No | Type: RX